FAERS Safety Report 5226783-9 (Version None)
Quarter: 2007Q1

REPORT INFORMATION
  Report Type: 
  Country: None (occurrence: None)
  Receive Date: 20070130
  Receipt Date: 20070115
  Transmission Date: 20070707
  Serious: Yes (Hospitalization)
  Sender: FDA-Public Use
  Company Number: MEDI-0005300

PATIENT
  Age: 11 Month

DRUGS (3)
  1. SYNAGIS [Suspect]
     Indication: ANTIVIRAL PROPHYLAXIS
     Dosage: 100 MG, INTRAMUSCULAR; 36 MG, INTRAMUSCULAR; 50 MG, INTRAMUSCULAR
     Route: 030
     Dates: start: 20060105, end: 20060307
  2. SYNAGIS [Suspect]
     Indication: ANTIVIRAL PROPHYLAXIS
     Dosage: 100 MG, INTRAMUSCULAR; 36 MG, INTRAMUSCULAR; 50 MG, INTRAMUSCULAR
     Route: 030
     Dates: start: 20060105
  3. SYNAGIS [Suspect]
     Indication: ANTIVIRAL PROPHYLAXIS
     Dosage: 100 MG, INTRAMUSCULAR; 36 MG, INTRAMUSCULAR; 50 MG, INTRAMUSCULAR
     Route: 030
     Dates: start: 20060207

REACTIONS (1)
  - BRONCHIOLITIS [None]
